FAERS Safety Report 7775584-6 (Version None)
Quarter: 2011Q3

REPORT INFORMATION
  Report Type: 
  Country: None (occurrence: None)
  Receive Date: 20110923
  Receipt Date: 20110915
  Transmission Date: 20111222
  Serious: Yes (Other)
  Sender: FDA-Public Use
  Company Number: US-ABBOTT-11P-163-0855264-00

PATIENT
  Age: 36 Year
  Sex: Female

DRUGS (3)
  1. RITONAVIR [Suspect]
     Indication: HIV INFECTION
     Route: 048
     Dates: start: 20100113
  2. DARUNAVIR ETHANOLATE [Concomitant]
     Indication: HIV INFECTION
     Route: 048
     Dates: start: 20100113
  3. TRUVADA [Concomitant]
     Indication: HIV INFECTION
     Route: 048
     Dates: start: 20100113

REACTIONS (1)
  - ABORTION INDUCED [None]
